FAERS Safety Report 8620397-6 (Version None)
Quarter: 2012Q3

REPORT INFORMATION
  Report Type: 
  Country: None (occurrence: None)
  Receive Date: 20120820
  Receipt Date: 20120820
  Transmission Date: 20120928
  Serious: Yes (Hospitalization)
  Sender: FDA-Public Use
  Company Number: None

PATIENT
  Age: 55 Year
  Sex: Female
  Weight: 78 kg

DRUGS (2)
  1. DALIRESP [Suspect]
     Indication: CHRONIC OBSTRUCTIVE PULMONARY DISEASE
     Dosage: 500 MCG DAILY PO
     Route: 048
  2. DALIRESP [Suspect]
     Indication: CHRONIC RESPIRATORY FAILURE
     Dosage: 500 MCG DAILY PO
     Route: 048

REACTIONS (1)
  - SUICIDAL IDEATION [None]
